FAERS Safety Report 6438609-6 (Version None)
Quarter: 2009Q4

REPORT INFORMATION
  Report Type: 
  Country: None (occurrence: None)
  Receive Date: 20091110
  Receipt Date: 20091026
  Transmission Date: 20100525
  Serious: Yes (Death, Hospitalization)
  Sender: FDA-Public Use
  Company Number: 2009AC000175

PATIENT
  Age: 59 Year
  Sex: Male

DRUGS (15)
  1. DIGOXIN [Suspect]
     Indication: ATRIAL FIBRILLATION
     Dosage: 0.125 MG;QD;PO
     Route: 048
     Dates: start: 20061106
  2. LIPITOR [Concomitant]
  3. PAXIL [Concomitant]
  4. ISORDIL [Concomitant]
  5. CLONIDINE [Concomitant]
  6. HYDRALAZINE HCL [Concomitant]
  7. COUMADIN [Concomitant]
  8. AMIODARONE HCL [Concomitant]
  9. ATENOLOL [Concomitant]
  10. FUROSEMIDE [Concomitant]
  11. LISINOPRIL [Concomitant]
  12. HEPARIN [Concomitant]
  13. ZOSYN [Concomitant]
  14. CLOPIDOGREL [Concomitant]
  15. PAROXETINE HCL [Concomitant]

REACTIONS (24)
  - ANXIETY [None]
  - ATRIAL FIBRILLATION [None]
  - BUNDLE BRANCH BLOCK [None]
  - CARDIAC FAILURE CONGESTIVE [None]
  - CONGESTIVE CARDIOMYOPATHY [None]
  - CORONARY ARTERY DISEASE [None]
  - CORONARY ARTERY EMBOLISM [None]
  - CORONARY ARTERY OCCLUSION [None]
  - DIABETES MELLITUS [None]
  - DIABETIC NEUROPATHY [None]
  - ESSENTIAL HYPERTENSION [None]
  - FOOT AMPUTATION [None]
  - HYPERCAPNIA [None]
  - HYPERTENSION [None]
  - INJURY [None]
  - OEDEMA [None]
  - PAIN [None]
  - PERIPHERAL VASCULAR DISORDER [None]
  - PULMONARY EMBOLISM [None]
  - RENAL FAILURE [None]
  - SKIN INFECTION [None]
  - SLEEP APNOEA SYNDROME [None]
  - TYPE 2 DIABETES MELLITUS [None]
  - VENTRICULAR HYPOKINESIA [None]
